FAERS Safety Report 5948767-5 (Version None)
Quarter: 2008Q4

REPORT INFORMATION
  Report Type: 
  Country: None (occurrence: None)
  Receive Date: 20081111
  Receipt Date: 20081105
  Transmission Date: 20090506
  Serious: Yes (Other)
  Sender: FDA-Public Use
  Company Number: US-ELI_LILLY_AND_COMPANY-US200811000969

PATIENT
  Age: 64 Year
  Sex: Male

DRUGS (8)
  1. HUMULIN R [Suspect]
     Indication: DIABETES MELLITUS
     Dosage: UNK, UNK
     Route: 058
  2. HUMULIN R [Suspect]
     Route: 058
  3. CRESTOR [Concomitant]
     Dosage: 5 MG, UNK
  4. TRICOR [Concomitant]
     Dosage: 145 MG, UNK
  5. NORVASC [Concomitant]
     Dosage: 5 MG, UNK
  6. METFORMIN HCL [Concomitant]
     Dosage: 1000 MG, 2/D
  7. LISINOPRIL [Concomitant]
     Dosage: 20 MG, 2/D
  8. ASPIRIN [Concomitant]
     Dosage: 180 MG, DAILY (1/D)

REACTIONS (3)
  - BLOOD GLUCOSE INCREASED [None]
  - DRUG INEFFECTIVE [None]
  - KNEE ARTHROPLASTY [None]
